FAERS Safety Report 7766678-X (Version None)
Quarter: 2011Q3

REPORT INFORMATION
  Report Type: 
  Country: None (occurrence: None)
  Receive Date: 20110922
  Receipt Date: 20110914
  Transmission Date: 20111222
  Serious: Yes (Other)
  Sender: FDA-Public Use
  Company Number: JP-JNJFOC-20110901567

PATIENT
  Age: 84 Year
  Sex: Female

DRUGS (5)
  1. VOLTAREN [Suspect]
     Indication: MUSCULOSKELETAL PAIN
     Route: 048
  2. MOTILIUM [Concomitant]
     Route: 065
  3. FAMOTIDINE [Concomitant]
     Dosage: 10 MG X 1 PER 1 DAY
     Route: 048
  4. TRAMADOL HYDROCHLORIDE/ACETAMINOPHEN [Suspect]
     Indication: MUSCULOSKELETAL PAIN
     Dosage: ONCE A  DAY
     Route: 048
  5. UNKNOWN MEDICATION [Suspect]
     Indication: MUSCULOSKELETAL PAIN
     Route: 065

REACTIONS (5)
  - RECTAL ULCER [None]
  - GASTRIC ULCER [None]
  - DIARRHOEA [None]
  - MELAENA [None]
  - DECREASED APPETITE [None]
